FAERS Safety Report 15583234 (Version 3)
Quarter: 2019Q3

REPORT INFORMATION
  Report Type: Other
  Country: CA (occurrence: CA)
  Receive Date: 20181105
  Receipt Date: 20190702
  Transmission Date: 20191004
  Serious: Yes (Hospitalization)
  Sender: FDA-Public Use
  Company Number: CA-HLSUS-2018-CA-001644

PATIENT
  Age: 70 Year
  Sex: Female

DRUGS (1)
  1. CLOZAPINE. [Suspect]
     Active Substance: CLOZAPINE
     Indication: PSYCHOTIC DISORDER
     Dosage: 37.5MG Q.H.S
     Route: 065

REACTIONS (6)
  - Therapeutic product effect incomplete [Unknown]
  - Dystonia [Recovering/Resolving]
  - Parkinson^s disease psychosis [Recovering/Resolving]
  - Orthostatic hypotension [Unknown]
  - Psychotic disorder [Recovering/Resolving]
  - Therapeutic response shortened [Recovering/Resolving]
